FAERS Safety Report 25214620 (Version 2)
Quarter: 2025Q2

REPORT INFORMATION
  Report Type: Spontaneous
  Country: US (occurrence: US)
  Receive Date: 20250418
  Receipt Date: 20250429
  Transmission Date: 20250716
  Serious: Yes (Other)
  Sender: DR REDDYS
  Company Number: US-DRL-USA-USA/2025/04/005168

PATIENT
  Age: 70 Year
  Sex: Male
  Weight: 74.842 kg

DRUGS (3)
  1. OMEPRAZOLE [Suspect]
     Active Substance: OMEPRAZOLE
     Indication: Gastrooesophageal reflux disease
     Dosage: THE PATIENT STARTED THE MEDICATION 2 YEARS AGO
     Route: 048
  2. OLMESARTAN [Concomitant]
     Active Substance: OLMESARTAN
     Indication: Product used for unknown indication
     Route: 065
  3. amlodipine hydrochlorothiazide [Concomitant]
     Indication: Product used for unknown indication
     Route: 065

REACTIONS (2)
  - Precancerous condition [Unknown]
  - Product prescribing issue [Unknown]
